FAERS Safety Report 8803769 (Version 1)
Quarter: 2012Q4

REPORT INFORMATION
  Report Type: 
  Country: FR (occurrence: FR)
  Receive Date: 20120924
  Receipt Date: 20120924
  Transmission Date: 20130627
  Serious: Yes (Hospitalization)
  Sender: FDA-Public Use
  Company Number: FR-PFIZER INC-2012229018

PATIENT
  Age: 66 Year
  Sex: Male

DRUGS (8)
  1. LINCOCIN [Suspect]
     Indication: INFECTION
     Dosage: 500 mg, 3x/day
     Route: 048
     Dates: start: 201207
  2. COTAREG [Suspect]
     Indication: HYPERTENSION
     Dosage: 1 DF, 1x/day
     Route: 048
     Dates: end: 20120710
  3. XARELTO [Suspect]
     Indication: PROPHYLAXIS
     Dosage: 10 mg, 1x/day
     Route: 048
     Dates: start: 20120629, end: 20120710
  4. DAFALGAN [Concomitant]
     Indication: PAIN
     Dosage: 2 DF, 4x/day if needed
     Route: 048
  5. TOPALGIC LP [Concomitant]
     Indication: PAIN
     Dosage: 1 DF, 1x/day if neeeded
     Route: 048
  6. SPECIAFOLDINE [Concomitant]
     Dosage: 5 mg, 1x/day
     Route: 048
  7. CHIBRO-PROSCAR [Concomitant]
     Dosage: 5 mg, 1x/day
     Route: 048
  8. RIFADINE [Concomitant]
     Indication: INFECTION
     Dosage: 300 mg, 3x/day
     Route: 048
     Dates: start: 201207

REACTIONS (4)
  - Hyponatraemia [Recovered/Resolved]
  - Hypokalaemia [Recovered/Resolved]
  - Asthenia [Recovered/Resolved]
  - Decreased appetite [Recovered/Resolved]
